FAERS Safety Report 11169731 (Version 2)
Quarter: 2015Q2

REPORT INFORMATION
  Report Type: Spontaneous
  Country: US (occurrence: None)
  Receive Date: 20150604
  Receipt Date: 20150629
  Transmission Date: 20150821
  Serious: Yes (Death, Hospitalization, Other)
  Sender: FDA-Public Use
  Company Number: B1020599A

PATIENT
  Age: 75 Year
  Sex: Male
  Weight: 54.2 kg

DRUGS (8)
  1. OXYBUTYNIN CHLORIDE (OXYBUTYNIN HYDROCLORIDE) [Concomitant]
  2. SIMVASTATIN FILM-COATED TABLET [Concomitant]
     Active Substance: SIMVASTATIN
  3. MARAVIROC (MARAVIROC) UNKNOWN [Suspect]
     Active Substance: MARAVIROC
     Indication: HIV INFECTION
     Route: 048
  4. SILDENAFIL. [Concomitant]
     Active Substance: SILDENAFIL
  5. DAPSONE. [Concomitant]
     Active Substance: DAPSONE
  6. EMTRICITABINE/TENOFOVIR DISOPROXIL FUMARATE (EMTRICITABINE\TENOFOVIR DISOPROXIL FUMARATE ) [Concomitant]
  7. FINASTERIDE. [Concomitant]
     Active Substance: FINASTERIDE
  8. TERAZOSIN HYDROCHLORIDE HYDRATE (TERAZOSIN HYDROCHLORIDE) [Concomitant]

REACTIONS (3)
  - Oral candidiasis [None]
  - Pneumonia [None]
  - Hodgkin^s disease [None]

NARRATIVE: CASE EVENT DATE: 20140728
